FAERS Safety Report 6231992-6 (Version None)
Quarter: 2009Q2

REPORT INFORMATION
  Report Type: 
  Country: None (occurrence: None)
  Receive Date: 20090616
  Receipt Date: 20090604
  Transmission Date: 20091009
  Serious: Yes (Other)
  Sender: FDA-Public Use
  Company Number: JP-PFIZER INC-2009226056

PATIENT
  Age: 88 Year

DRUGS (13)
  1. CABASER [Suspect]
     Route: 048
  2. NORVASC [Concomitant]
     Route: 048
  3. URSO 250 [Concomitant]
  4. MAGNESIUM OXIDE [Concomitant]
  5. PURSENNID [Concomitant]
  6. GASMOTIN [Concomitant]
  7. LAXOBERON [Concomitant]
  8. BIO THREE [Concomitant]
  9. PARIET [Concomitant]
  10. MUCOSTA [Concomitant]
  11. ACTONEL [Concomitant]
  12. CARBIDOPA AND LEVODOPA [Concomitant]
  13. ASPIRIN [Concomitant]

REACTIONS (3)
  - EAR DISORDER [None]
  - MEDICATION ERROR [None]
  - VISUAL IMPAIRMENT [None]
